FAERS Safety Report 7705231-0 (Version None)
Quarter: 2011Q3

REPORT INFORMATION
  Report Type: 
  Country: None (occurrence: None)
  Receive Date: 20110822
  Receipt Date: 20110822
  Transmission Date: 20111222
  Serious: Yes (Hospitalization)
  Sender: FDA-Public Use
  Company Number: None

PATIENT
  Sex: Male
  Weight: 69.6 kg

DRUGS (2)
  1. CARBOPLATIN [Suspect]
     Dosage: 300 MG
     Dates: end: 20110728
  2. PACLITAXEL [Suspect]
     Dosage: 87 MG
     Dates: end: 20110728

REACTIONS (4)
  - DYSPHAGIA [None]
  - DEHYDRATION [None]
  - FEBRILE NEUTROPENIA [None]
  - MALAISE [None]
